FAERS Safety Report 4925264-7 (Version None)
Quarter: 2006Q1

REPORT INFORMATION
  Report Type: 
  Country: None (occurrence: None)
  Receive Date: 20060223
  Receipt Date: 20060223
  Transmission Date: 20060701
  Serious: Yes (Other)
  Sender: FDA-Public Use
  Company Number: None

PATIENT
  Sex: Female
  Weight: 83 kg

DRUGS (2)
  1. CYCLOPHOSPHAMIDE [Suspect]
     Indication: BREAST CANCER
     Dosage: 120 MG
     Route: 042
     Dates: start: 20050104, end: 20050125
  2. DOXORUBICIN HCL [Suspect]
     Dosage: 121 MG
     Route: 042
     Dates: start: 20050104, end: 20050125

REACTIONS (8)
  - ANAEMIA [None]
  - BLOOD POTASSIUM DECREASED [None]
  - CATHETER RELATED INFECTION [None]
  - NAUSEA [None]
  - PYREXIA [None]
  - STAPHYLOCOCCAL INFECTION [None]
  - VOMITING [None]
  - WEIGHT DECREASED [None]
